FAERS Safety Report 5305074-1 (Version None)
Quarter: 2007Q2

REPORT INFORMATION
  Report Type: 
  Country: None (occurrence: None)
  Receive Date: 20070417
  Receipt Date: 20070405
  Transmission Date: 20071010
  Serious: Yes (Hospitalization)
  Sender: FDA-Public Use
  Company Number: 2007BI006706

PATIENT
  Age: 59 Year
  Sex: Female
  Weight: 87.0906 kg

DRUGS (1)
  1. AVONEX [Suspect]
     Indication: MULTIPLE SCLEROSIS
     Dosage: 30 UG;QW;IM
     Route: 030
     Dates: start: 20030501

REACTIONS (6)
  - ASPIRATION [None]
  - BRONCHITIS [None]
  - MIGRAINE [None]
  - PNEUMONIA [None]
  - VISUAL DISTURBANCE [None]
  - WHEEZING [None]
